FAERS Safety Report 9046195 (Version 1)
Quarter: 2013Q1

REPORT INFORMATION
  Report Type: Spontaneous
  Country: BR (occurrence: BR)
  Receive Date: 20130201
  Receipt Date: 20130201
  Transmission Date: 20140127
  Serious: Yes (Other)
  Sender: FDA-Public Use
  Company Number: PHHY2008BR13681

PATIENT
  Sex: Male
  Weight: 75 kg

DRUGS (11)
  1. METHYSERGIDE [Suspect]
     Indication: MIGRAINE
     Dosage: 1 DF, Q8H
     Route: 048
     Dates: start: 200803
  2. METHYSERGIDE [Suspect]
     Dosage: 1 DF, BID
     Route: 048
  3. METHYSERGIDE [Suspect]
     Dosage: 1 DF, TID
     Route: 048
     Dates: end: 20080614
  4. METHYSERGIDE [Suspect]
     Dosage: 2 DF (1MG), DAILY
     Route: 048
  5. PROPANOLOL [Concomitant]
     Indication: HYPERTENSION
     Dosage: 1 DF, BID
     Route: 048
  6. BROMAZEPAM [Concomitant]
     Indication: ANXIETY
     Dosage: 1 DF, BID
     Route: 048
  7. ATACAND [Concomitant]
     Dosage: 1 DF, MORNING
     Route: 048
  8. CANDESARTAN CILEXETIL [Concomitant]
     Indication: HYPERTENSION
  9. PARCEL [Concomitant]
     Indication: MIGRAINE
  10. PROLOPA [Concomitant]
     Indication: MIGRAINE
  11. NARAMIG [Concomitant]
     Dosage: 1 OR 2 TABLET  THREE TIMES A DAY

REACTIONS (10)
  - Suicidal ideation [Not Recovered/Not Resolved]
  - Migraine [Not Recovered/Not Resolved]
  - Rebound effect [Not Recovered/Not Resolved]
  - Nervousness [Not Recovered/Not Resolved]
  - Crying [Not Recovered/Not Resolved]
  - Pain [Not Recovered/Not Resolved]
  - Dysstasia [None]
  - Impaired work ability [None]
  - Therapy cessation [None]
  - Nervousness [None]
